FAERS Safety Report 8008991 (Version 5)
Quarter: 2013Q3

REPORT INFORMATION
  Report Type: Report from Study
  Country: US (occurrence: US)
  Receive Date: 20110624
  Receipt Date: 20130707
  Transmission Date: 20140515
  Serious: Yes (Other)
  Sender: FDA-Public Use
  Company Number: US-UCBSA-016214

PATIENT
  Age: 24 Hour
  Sex: Female
  Weight: 3.1 kg

DRUGS (5)
  1. KEPPRA [Suspect]
     Indication: EPILEPSY
     Dosage: 1000 DAILY DOSE
     Route: 064
     Dates: end: 200911
  2. KEPPRA XR [Suspect]
     Route: 064
     Dates: start: 200911, end: 20100531
  3. FOLIC ACID [Concomitant]
     Indication: PREGNANCY
     Route: 064
  4. PRENATAL VITAMINS [Concomitant]
     Indication: PREGNANCY
     Route: 064
  5. FERROUS SULPHATE [Concomitant]
     Indication: BLOOD IRON DECREASED
     Route: 064
     Dates: start: 20091106

REACTIONS (4)
  - Bradycardia foetal [Unknown]
  - Jaundice [Unknown]
  - Haemangioma [Not Recovered/Not Resolved]
  - Foetal exposure during pregnancy [Unknown]
